FAERS Safety Report 6169504-8 (Version None)
Quarter: 2009Q2

REPORT INFORMATION
  Report Type: 
  Country: None (occurrence: None)
  Receive Date: 20090424
  Receipt Date: 20081210
  Transmission Date: 20091009
  Serious: No
  Sender: FDA-Public Use
  Company Number: SPV1-2008-02735

PATIENT
  Sex: Female

DRUGS (1)
  1. VYVANSE [Suspect]
     Dosage: 200 MG (IN THE LAST 19 HOURS), OTHER, ORAL
     Route: 048
     Dates: start: 20081209, end: 20081210

REACTIONS (4)
  - DYSPNOEA [None]
  - INTENTIONAL DRUG MISUSE [None]
  - INTENTIONAL OVERDOSE [None]
  - PALPITATIONS [None]
